FAERS Safety Report 19899659 (Version 1)
Quarter: 2021Q3

REPORT INFORMATION
  Report Type: Spontaneous
  Country: US (occurrence: US)
  Receive Date: 20210930
  Receipt Date: 20210930
  Transmission Date: 20211014
  Serious: Yes (Hospitalization, Other)
  Sender: FDA-Public Use
  Company Number: None

PATIENT
  Age: 53 Year
  Sex: Male
  Weight: 99.8 kg

DRUGS (4)
  1. REMDESIVIR. [Suspect]
     Active Substance: REMDESIVIR
     Indication: COVID-19
     Dosage: ?          OTHER FREQUENCY:ONCE;?
     Route: 042
     Dates: start: 20210928, end: 20210928
  2. IOHEXOL 300 MG IV ONCE [Concomitant]
     Dates: start: 20210928
  3. DEXTROMETHORPHAN?GUAIFENESIN 10?100 MG/5 ML SYRUP Q6H PRN [Concomitant]
     Dates: start: 20210928
  4. METHYLPREDNISOLONE 40 MG IV Q12H [Concomitant]
     Dates: start: 20210928

REACTIONS (2)
  - Panic attack [None]
  - Feeling abnormal [None]

NARRATIVE: CASE EVENT DATE: 20210929
